FAERS Safety Report 18287922 (Version 1)
Quarter: 2020Q3

REPORT INFORMATION
  Report Type: Spontaneous
  Country: GB (occurrence: GB)
  Receive Date: 20200921
  Receipt Date: 20200921
  Transmission Date: 20201103
  Serious: Yes (Other)
  Sender: FDA-Public Use
  Company Number: GB-TEVA-2020-GB-1828885

PATIENT
  Age: 87 Year
  Sex: Male
  Weight: 79.37 kg

DRUGS (17)
  1. VENTOLIN [Concomitant]
     Active Substance: ALBUTEROL SULFATE
  2. ACETYLSALICYLIC ACID [Concomitant]
     Active Substance: ASPIRIN
  3. ISOSORBIDE MONONITRATE. [Concomitant]
     Active Substance: ISOSORBIDE MONONITRATE
  4. TRAMADOL. [Concomitant]
     Active Substance: TRAMADOL
  5. PARACETAMOL [Concomitant]
     Active Substance: ACETAMINOPHEN
  6. PROSCAR [Concomitant]
     Active Substance: FINASTERIDE
  7. GLYCERYL TRINITRATE [Concomitant]
     Active Substance: NITROGLYCERIN
  8. LIPITOR [Concomitant]
     Active Substance: ATORVASTATIN CALCIUM
     Dosage: 40 MG
  9. RAMIPRIL. [Concomitant]
     Active Substance: RAMIPRIL
  10. GLYCERYL TRINITRATE [Concomitant]
     Active Substance: NITROGLYCERIN
     Dosage: 10 MG
  11. NATRILIX SR [Concomitant]
     Active Substance: INDAPAMIDE
  12. FORCEVAL [Concomitant]
     Active Substance: FOLIC ACID\IRON\MINERALS\VITAMINS
  13. CLARITHROMYCIN. [Suspect]
     Active Substance: CLARITHROMYCIN
     Indication: LOWER RESPIRATORY TRACT INFECTION
     Dosage: 500 MG
     Route: 048
     Dates: start: 20200814, end: 20200819
  14. BECONASE AQ [Concomitant]
     Active Substance: BECLOMETHASONE DIPROPIONATE MONOHYDRATE
  15. LACTULOSE, LIQUID [Concomitant]
     Active Substance: LACTULOSE
  16. COLOFAC [Concomitant]
     Active Substance: MEBEVERINE HYDROCHLORIDE
  17. PROCORALAN [Concomitant]
     Active Substance: IVABRADINE

REACTIONS (3)
  - Insomnia [Not Recovered/Not Resolved]
  - Thirst [Not Recovered/Not Resolved]
  - Dry mouth [Not Recovered/Not Resolved]

NARRATIVE: CASE EVENT DATE: 20200814
